FAERS Safety Report 20563382 (Version 1)
Quarter: 2022Q1

REPORT INFORMATION
  Report Type: Spontaneous
  Country: CA (occurrence: CA)
  Receive Date: 20220308
  Receipt Date: 20220308
  Transmission Date: 20220423
  Serious: Yes (Other)
  Sender: FDA-Public Use
  Company Number: CA-PFIZER INC-2021346382

PATIENT
  Age: 42 Year
  Sex: Male

DRUGS (11)
  1. SOMAVERT [Suspect]
     Active Substance: PEGVISOMANT
     Indication: Acromegaly
     Dosage: 10 MG, 1X/DAY
     Route: 058
     Dates: start: 20210203, end: 2022
  2. CYCLOBENZAPRINE [Concomitant]
     Active Substance: CYCLOBENZAPRINE
     Indication: Muscle tightness
     Dosage: 10 MG, 1X/DAY (10 MG HS PRN)
     Route: 049
  3. NAPROXEN [Concomitant]
     Active Substance: NAPROXEN
     Indication: Pain
     Dosage: 500 MG, AS NEEDED (1-2 DAILY)
     Route: 048
  4. BETADERM OINTMENT [Concomitant]
     Indication: Skin lesion
     Dosage: 1 DF, 1X/DAY (APPLY ONCE DAILY ON LESIONS)
     Route: 061
  5. EMOLAX [SODIUM PICOSULFATE] [Concomitant]
     Indication: Constipation
     Dosage: 1 DF, DISSOLVE 1 DOSE (17G) IN 250 ML LIQUID 1-2 TIMES DAILY REGULARLY
     Route: 048
  6. ENEMA [SODIUM CHLORIDE] [Concomitant]
     Indication: Constipation
     Dosage: 1 DF, 1X/DAY (ADMINISTER CONTENTS OF BOTTLE ONCE PER DAY PRN)
     Route: 054
  7. GEN-VERAPAMIL [Concomitant]
     Indication: Migraine prophylaxis
     Dosage: 80 MG, 3X/DAY(WITH MEALS)
     Route: 048
  8. GLYCERIN [Concomitant]
     Active Substance: GLYCERIN
     Indication: Constipation
     Dosage: 1 DF, AS NEEDED
     Route: 054
  9. JAMP BISACODYL [Concomitant]
     Indication: Constipation
     Dosage: 1 DF, 1X/DAY PRN
     Route: 054
  10. SANDOZ ALMOTRIPTAN [Concomitant]
     Indication: Migraine
     Dosage: 12.5 MG PRN, REPEAT AFTER 12 HOURS IF NEEDED (MAX 2 PER DAY, 10 PER MONTH)
     Route: 048
  11. TRAZODONE [Concomitant]
     Active Substance: TRAZODONE HYDROCHLORIDE
     Indication: Insomnia
     Dosage: 1 DF, 1X/DAY (25 TO 50 MG TAB, AT BEDTIME)
     Route: 048

REACTIONS (3)
  - Tumour excision [Unknown]
  - Inflammation [Unknown]
  - Product dose omission in error [Recovered/Resolved]

NARRATIVE: CASE EVENT DATE: 20210527
